FAERS Safety Report 5782127-5 (Version None)
Quarter: 2008Q2

REPORT INFORMATION
  Report Type: 
  Country: None (occurrence: None)
  Receive Date: 20080623
  Receipt Date: 20080620
  Transmission Date: 20081010
  Serious: Yes (Death)
  Sender: FDA-Public Use
  Company Number: US-ASTRAZENECA-2008UW12445

PATIENT
  Age: 25 Year
  Sex: Male

DRUGS (2)
  1. ARIMIDEX [Suspect]
     Dosage: LIQUID FORM, POSSIBLY INJECTED
  2. VIAGRA [Suspect]
     Dosage: LIQUID FORM, POSSIBLY INJECTED

REACTIONS (3)
  - CONGESTIVE CARDIOMYOPATHY [None]
  - HEART RATE IRREGULAR [None]
  - INTENTIONAL DRUG MISUSE [None]
